FAERS Safety Report 16300360 (Version 1)
Quarter: 2019Q2

REPORT INFORMATION
  Report Type: Spontaneous
  Country: GB (occurrence: GB)
  Receive Date: 20190510
  Receipt Date: 20190510
  Transmission Date: 20190711
  Serious: Yes (Death, Hospitalization)
  Sender: FDA-Public Use
  Company Number: GB-DRREDDYS-GER/UKI/19/0109943

PATIENT
  Age: 33 Year
  Sex: Male

DRUGS (2)
  1. OLANZAPINE. [Suspect]
     Active Substance: OLANZAPINE
     Indication: SCHIZOPHRENIA
     Dates: start: 20160518
  2. RISPERIDONE. [Concomitant]
     Active Substance: RISPERIDONE
     Indication: PRODUCT USED FOR UNKNOWN INDICATION
     Dosage: SWITCHED TO OLANZAPINE

REACTIONS (12)
  - Circulatory collapse [Fatal]
  - Hypersensitivity [Fatal]
  - Haemoptysis [Fatal]
  - Hypertension [Fatal]
  - Respiratory arrest [Fatal]
  - Hypoxia [Fatal]
  - Agitation [Fatal]
  - Loss of consciousness [Fatal]
  - Drug interaction [Fatal]
  - Foaming at mouth [Fatal]
  - Tachycardia [Fatal]
  - Eosinophilia [Fatal]

NARRATIVE: CASE EVENT DATE: 20160618
